FAERS Safety Report 9659695 (Version 2)
Quarter: 2013Q4

REPORT INFORMATION
  Report Type: Report from Study
  Country: CA (occurrence: CA)
  Receive Date: 20131031
  Receipt Date: 20131226
  Transmission Date: 20140711
  Serious: Yes (Hospitalization, Other)
  Sender: FDA-Public Use
  Company Number: CA-JNJFOC-20131017042

PATIENT
  Age: 30 Year
  Sex: Male
  Weight: 79.5 kg

DRUGS (3)
  1. REMICADE [Suspect]
     Indication: CROHN^S DISEASE
     Dosage: 6TH DOSE
     Route: 042
     Dates: start: 20131220
  2. REMICADE [Suspect]
     Indication: CROHN^S DISEASE
     Route: 042
     Dates: start: 20130408
  3. IMURAN [Concomitant]
     Route: 048
     Dates: start: 201302

REACTIONS (3)
  - Small intestinal stenosis [Recovered/Resolved]
  - Intestinal obstruction [Recovered/Resolved]
  - Nasopharyngitis [Not Recovered/Not Resolved]
